FAERS Safety Report 16307091 (Version 1)
Quarter: 2019Q2

REPORT INFORMATION
  Report Type: Report from Study
  Country: None (occurrence: CA)
  Receive Date: 20190513
  Receipt Date: 20190513
  Transmission Date: 20190711
  Serious: Yes (Hospitalization, Other)
  Sender: FDA-Public Use
  Company Number: CA-ABBVIE-19K-028-2776743-00

PATIENT
  Sex: Male

DRUGS (3)
  1. COLCHICINE. [Interacting]
     Active Substance: COLCHICINE
     Indication: PRODUCT USED FOR UNKNOWN INDICATION
     Route: 065
     Dates: start: 20190501, end: 201905
  2. MAVIRET [Suspect]
     Active Substance: GLECAPREVIR\PIBRENTASVIR
     Indication: CHRONIC HEPATITIS C
     Route: 048
     Dates: start: 20190424
  3. MAGNESIUM [Concomitant]
     Active Substance: MAGNESIUM
     Indication: PRODUCT USED FOR UNKNOWN INDICATION

REACTIONS (10)
  - Confusional state [Unknown]
  - Hospitalisation [Unknown]
  - Vitreous floaters [Unknown]
  - Dizziness [Unknown]
  - Toxicity to various agents [Unknown]
  - Frequent bowel movements [Unknown]
  - Fatigue [Unknown]
  - Drug interaction [Unknown]
  - Stoma creation [Unknown]
  - Muscle spasms [Unknown]
